FAERS Safety Report 8790421 (Version 1)
Quarter: 2012Q4

REPORT INFORMATION
  Report Type: Spontaneous
  Country: US (occurrence: None)
  Receive Date: 20120911
  Receipt Date: 20120911
  Transmission Date: 20130627
  Serious: No
  Sender: FDA-Public Use
  Company Number: None

PATIENT
  Age: 57 Year
  Sex: Male
  Weight: 58.06 kg

DRUGS (1)
  1. PRAVASTATIN [Suspect]
     Indication: HIGH CHOLESTEROL
     Dosage: 1/2 tablet -40 mg- once Buccal
     Route: 002
     Dates: start: 20120727, end: 20120727

REACTIONS (6)
  - Fatigue [None]
  - Asthenia [None]
  - Tremor [None]
  - Thinking abnormal [None]
  - Fear [None]
  - Feeling abnormal [None]
